FAERS Safety Report 9218306 (Version 1)
Quarter: 2013Q2

REPORT INFORMATION
  Report Type: Spontaneous
  Country: BR (occurrence: BR)
  Receive Date: 20130409
  Receipt Date: 20130409
  Transmission Date: 20140414
  Serious: Yes (Other)
  Sender: FDA-Public Use
  Company Number: BR-AMGEN-BRASP2011000024

PATIENT
  Age: 69 Year
  Sex: Female
  Weight: 68 kg

DRUGS (8)
  1. ENBREL [Suspect]
     Indication: RHEUMATOID ARTHRITIS
     Dosage: 50 MG, WEEKLY
     Route: 058
     Dates: start: 2009
  2. ENBREL [Suspect]
     Dosage: 50 MG, WEEKLY
     Route: 058
     Dates: start: 2011
  3. ENBREL [Suspect]
     Dosage: 50 MG, QWK
     Route: 058
     Dates: start: 201003
  4. ARAVA [Concomitant]
     Dosage: UNK
  5. PREDNISONE [Concomitant]
     Dosage: UNK
  6. HYDROXYCHLOROQUINE [Concomitant]
     Dosage: UNK
  7. ALENDRONATE SODIUM [Concomitant]
     Indication: OSTEOPOROSIS
     Dosage: UNK
  8. ALENDRONATE SODIUM [Concomitant]
     Dosage: 70 MG, UNK

REACTIONS (4)
  - Osteoarthritis [Unknown]
  - Osteoporosis [Unknown]
  - Bronchitis [Recovered/Resolved]
  - Mental disorder [Recovered/Resolved]
